FAERS Safety Report 17007904 (Version 1)
Quarter: 2019Q4

REPORT INFORMATION
  Report Type: Report from Study
  Country: US (occurrence: US)
  Receive Date: 20191108
  Receipt Date: 20191108
  Transmission Date: 20200122
  Serious: Yes (Hospitalization, Other)
  Sender: FDA-Public Use
  Company Number: US-ROCHE-2455577

PATIENT
  Age: 39 Year
  Sex: Male
  Weight: 99.88 kg

DRUGS (3)
  1. OCREVUS [Suspect]
     Active Substance: OCRELIZUMAB
     Indication: MULTIPLE SCLEROSIS
     Dosage: INFUSE 300 MG DAY ONE AND 300 MG DAY 15?ONGOING:YES?600 MG ONCE EVERY 6 MONTHS
     Route: 042
     Dates: start: 201810
  2. COPAXONE [Concomitant]
     Active Substance: GLATIRAMER ACETATE
  3. AMPYRA [Concomitant]
     Active Substance: DALFAMPRIDINE
     Indication: MULTIPLE SCLEROSIS
     Dosage: ONGOING:YES
     Route: 048
     Dates: start: 20110101

REACTIONS (3)
  - Blister [Recovered/Resolved]
  - Urinary tract infection [Recovered/Resolved]
  - Asthenia [Recovered/Resolved]

NARRATIVE: CASE EVENT DATE: 201905
